FAERS Safety Report 12774201 (Version 2)
Quarter: 2016Q3

REPORT INFORMATION
  Report Type: Spontaneous
  Country: US (occurrence: US)
  Receive Date: 20160923
  Receipt Date: 20160928
  Transmission Date: 20161109
  Serious: Yes (Other)
  Sender: FDA-Public Use
  Company Number: US-PFIZER INC-2016440963

PATIENT
  Age: 62 Year
  Sex: Male
  Weight: 84.8 kg

DRUGS (7)
  1. METHOTREXATE SODIUM. [Suspect]
     Active Substance: METHOTREXATE SODIUM
     Dosage: UNK
  2. ENBREL [Concomitant]
     Active Substance: ETANERCEPT
  3. PREDNISONE. [Suspect]
     Active Substance: PREDNISONE
  4. METOPROLOL. [Concomitant]
     Active Substance: METOPROLOL
  5. RASUVO [Suspect]
     Active Substance: METHOTREXATE SODIUM
     Indication: RHEUMATOID ARTHRITIS
     Dosage: 20 MG, WEEKLY
     Dates: start: 20160806
  6. OMEGA 3 [Concomitant]
     Active Substance: OMEGA-3 FATTY ACIDS
  7. ASPIRIN. [Concomitant]
     Active Substance: ASPIRIN

REACTIONS (4)
  - Aortic aneurysm [Unknown]
  - Vasoconstriction [Unknown]
  - Vasodilatation [Unknown]
  - Peripheral artery aneurysm [Unknown]
